FAERS Safety Report 15886146 (Version 2)
Quarter: 2019Q2

REPORT INFORMATION
  Report Type: Spontaneous
  Country: JP (occurrence: JP)
  Receive Date: 20190129
  Receipt Date: 20190605
  Transmission Date: 20190711
  Serious: Yes (Death, Hospitalization, Other)
  Sender: FDA-Public Use
  Company Number: JP-PFIZER INC-2019033525

PATIENT
  Age: 94 Year
  Sex: Male
  Weight: 54.8 kg

DRUGS (1)
  1. TOVIAZ [Suspect]
     Active Substance: FESOTERODINE FUMARATE
     Indication: HYPERTONIC BLADDER
     Dosage: 4 MG, DAILY
     Dates: start: 20190105, end: 20190106

REACTIONS (8)
  - Urinary retention [Recovered/Resolved]
  - Pleural effusion [Recovering/Resolving]
  - Back pain [Unknown]
  - Generalised oedema [Recovering/Resolving]
  - Influenza [Unknown]
  - Pulmonary oedema [Recovered/Resolved]
  - Death [Fatal]
  - Fall [Unknown]

NARRATIVE: CASE EVENT DATE: 201901
